FAERS Safety Report 22350453 (Version 2)
Quarter: 2023Q2

REPORT INFORMATION
  Report Type: Spontaneous
  Country: US (occurrence: None)
  Receive Date: 20230522
  Receipt Date: 20230622
  Transmission Date: 20230722
  Serious: No
  Sender: FDA-Public Use
  Company Number: US-Eisai Medical Research-EC-2023-138572

PATIENT
  Age: 86 Year
  Sex: Male

DRUGS (5)
  1. LEQEMBI [Suspect]
     Active Substance: LECANEMAB-IRMB
     Indication: Dementia Alzheimer^s type
     Dosage: DOSE AND FREQUENCY UNKNOWN
     Route: 042
     Dates: start: 20230411
  2. GEMTESA [Concomitant]
     Active Substance: VIBEGRON
     Indication: Bladder disorder
     Dosage: DOSE AND FREQUENCY UNKNOWN
     Route: 065
  3. NUEDEXTA [Concomitant]
     Active Substance: DEXTROMETHORPHAN HYDROBROMIDE\QUINIDINE SULFATE
     Indication: Mood altered
     Dosage: DOSE UNKNOWN
     Route: 065
     Dates: start: 202212
  4. DULOXETINE [Concomitant]
     Active Substance: DULOXETINE
     Indication: Anxiety
     Dosage: DOSE UNKNOWN
     Route: 065
  5. ARICEPT [Concomitant]
     Active Substance: DONEPEZIL HYDROCHLORIDE
     Indication: Dementia Alzheimer^s type
     Route: 048

REACTIONS (14)
  - Migraine [Recovered/Resolved]
  - Pain [Recovered/Resolved]
  - Muscular weakness [Recovering/Resolving]
  - Aggression [Recovering/Resolving]
  - Tremor [Recovering/Resolving]
  - Fatigue [Recovering/Resolving]
  - Anger [Recovering/Resolving]
  - Arthralgia [Recovering/Resolving]
  - Depressed mood [Recovering/Resolving]
  - Headache [Recovering/Resolving]
  - Productive cough [Recovering/Resolving]
  - Crying [Recovering/Resolving]
  - Screaming [Recovering/Resolving]
  - Hypoacusis [Recovering/Resolving]

NARRATIVE: CASE EVENT DATE: 20230401
